FAERS Safety Report 10886678 (Version 3)
Quarter: 2015Q2

REPORT INFORMATION
  Report Type: Spontaneous
  Country: US (occurrence: US)
  Receive Date: 20150304
  Receipt Date: 20150625
  Transmission Date: 20150821
  Serious: Yes (Other)
  Sender: FDA-Public Use
  Company Number: US-GLAXOSMITHKLINE-US2015GSK012251

PATIENT
  Age: 67 Year
  Sex: Female
  Weight: 63.95 kg

DRUGS (3)
  1. XELODA [Suspect]
     Active Substance: CAPECITABINE
     Indication: BREAST CANCER
  2. TYKERB [Suspect]
     Active Substance: LAPATINIB DITOSYLATE
     Indication: BREAST CANCER
     Dosage: FIVE 250 MG TABLETS PER DAY
     Route: 048
     Dates: start: 201209
  3. PRAVASTATIN [Suspect]
     Active Substance: PRAVASTATIN\PRAVASTATIN SODIUM
     Indication: BLOOD CHOLESTEROL
     Dosage: TAKING HALF OF 40 MG (FREQUENCY UNSPECIFIED)

REACTIONS (7)
  - Nasopharyngitis [Recovering/Resolving]
  - Weight decreased [Recovered/Resolved]
  - Headache [Recovering/Resolving]
  - Onychoclasis [Not Recovered/Not Resolved]
  - Metastases to central nervous system [Not Recovered/Not Resolved]
  - Infection [Recovered/Resolved]
  - Alopecia [Unknown]

NARRATIVE: CASE EVENT DATE: 20150119
